FAERS Safety Report 23756051 (Version 2)
Quarter: 2024Q2

REPORT INFORMATION
  Report Type: Spontaneous
  Country: CN (occurrence: CN)
  Receive Date: 20240418
  Receipt Date: 20240423
  Transmission Date: 20240716
  Serious: Yes (Other)
  Sender: FDA-Public Use
  Company Number: CN-BAYER-2024A055770

PATIENT
  Age: 30 Year
  Sex: Female

DRUGS (1)
  1. YASMIN [Suspect]
     Active Substance: DROSPIRENONE\ETHINYL ESTRADIOL
     Indication: Postoperative care
     Dosage: 1 DF, QD
     Route: 048
     Dates: start: 201804, end: 202202

REACTIONS (2)
  - Intestinal ischaemia [Recovered/Resolved]
  - Off label use [None]

NARRATIVE: CASE EVENT DATE: 20180401
